FAERS Safety Report 14714507 (Version 2)
Quarter: 2018Q2

REPORT INFORMATION
  Report Type: Spontaneous
  Country: JP (occurrence: JP)
  Receive Date: 20180404
  Receipt Date: 20180411
  Transmission Date: 20180711
  Serious: Yes (Hospitalization)
  Sender: FDA-Public Use
  Company Number: JP-GILEAD-2018-0329598

PATIENT
  Age: 76 Year
  Sex: Female

DRUGS (15)
  1. ISENTRESS [Concomitant]
     Active Substance: RALTEGRAVIR POTASSIUM
     Indication: ACQUIRED IMMUNODEFICIENCY SYNDROME
  2. BAKTAR [Concomitant]
     Active Substance: SULFAMETHOXAZOLE\TRIMETHOPRIM
  3. LAXOBERON [Concomitant]
     Active Substance: SODIUM PICOSULFATE
  4. ZITHROMAC [Concomitant]
     Active Substance: AZITHROMYCIN DIHYDRATE
  5. MOHRUS [Concomitant]
     Active Substance: KETOPROFEN
  6. MYTEAR                             /00629201/ [Concomitant]
  7. KINDAVATE [Concomitant]
     Active Substance: CLOBETASONE BUTYRATE
  8. VESICARE [Concomitant]
     Active Substance: SOLIFENACIN SUCCINATE
  9. NORVASC [Concomitant]
     Active Substance: AMLODIPINE BESYLATE
  10. VALIXA [Concomitant]
     Active Substance: VALGANCICLOVIR
     Indication: ACQUIRED IMMUNODEFICIENCY SYNDROME
  11. NAUZELIN [Concomitant]
     Active Substance: DOMPERIDONE
  12. VEMLIDY [Suspect]
     Active Substance: TENOFOVIR ALAFENAMIDE FUMARATE
     Indication: ACQUIRED IMMUNODEFICIENCY SYNDROME
     Route: 048
  13. NEXIUM [Concomitant]
     Active Substance: ESOMEPRAZOLE MAGNESIUM
  14. EMTRIVA [Concomitant]
     Active Substance: EMTRICITABINE
     Indication: ACQUIRED IMMUNODEFICIENCY SYNDROME
  15. ESANBUTOL                          /00022302/ [Concomitant]

REACTIONS (2)
  - Off label use [Unknown]
  - Vomiting [Unknown]

NARRATIVE: CASE EVENT DATE: 20180222
